FAERS Safety Report 4523000-X (Version None)
Quarter: 2004Q4

REPORT INFORMATION
  Report Type: 
  Country: None (occurrence: None)
  Receive Date: 20041208
  Receipt Date: 20041125
  Transmission Date: 20050328
  Serious: Yes (Other)
  Sender: FDA-Public Use
  Company Number: 2004102349

PATIENT
  Age: 11 Year
  Sex: Female
  Weight: 68 kg

DRUGS (1)
  1. ETHOSUXIMDE (ETHOSUXIMIDE) [Suspect]
     Indication: ILL-DEFINED DISORDER

REACTIONS (2)
  - HEPATITIS [None]
  - NEUTROPENIA [None]
